FAERS Safety Report 13187712 (Version 1)
Quarter: 2017Q1

REPORT INFORMATION
  Report Type: Spontaneous
  Country: US (occurrence: US)
  Receive Date: 20170206
  Receipt Date: 20170206
  Transmission Date: 20170428
  Serious: No
  Sender: FDA-Public Use
  Company Number: US-PFIZER INC-2017047654

PATIENT
  Sex: Female

DRUGS (2)
  1. ASPARTAME [Suspect]
     Active Substance: ASPARTAME
     Dosage: UNK
  2. LORATADINE. [Suspect]
     Active Substance: LORATADINE
     Indication: HYPERSENSITIVITY
     Dosage: UNK

REACTIONS (2)
  - Reaction to drug excipients [Unknown]
  - Feeling abnormal [Unknown]
